FAERS Safety Report 8559654-0 (Version None)
Quarter: 2012Q3

REPORT INFORMATION
  Report Type: 
  Country: None (occurrence: None)
  Receive Date: 20120802
  Receipt Date: 20120725
  Transmission Date: 20120928
  Serious: Yes (Hospitalization)
  Sender: FDA-Public Use
  Company Number: US-ABBOTT-12P-163-0961525-00

PATIENT
  Sex: Male
  Weight: 74.456 kg

DRUGS (5)
  1. DETROL LA [Concomitant]
     Indication: PRODUCT USED FOR UNKNOWN INDICATION
     Dates: start: 20120401
  2. PREDNISONE [Concomitant]
     Indication: PRODUCT USED FOR UNKNOWN INDICATION
     Dates: start: 20120401
  3. HUMIRA [Suspect]
     Indication: PSORIASIS
     Dates: start: 20091118, end: 20120118
  4. PYRIDOXINE HCL [Concomitant]
     Indication: PRODUCT USED FOR UNKNOWN INDICATION
     Dates: start: 20120401
  5. SENOKOT [Concomitant]
     Indication: PRODUCT USED FOR UNKNOWN INDICATION
     Dates: start: 20120401

REACTIONS (23)
  - ABDOMINAL MASS [None]
  - VOMITING [None]
  - LUNG INFILTRATION [None]
  - SCROTAL MASS [None]
  - COUGH [None]
  - LUNG DISORDER [None]
  - TUBERCULIN TEST POSITIVE [None]
  - GROIN PAIN [None]
  - PELVIC MASS [None]
  - CENTRAL NERVOUS SYSTEM LESION [None]
  - NAUSEA [None]
  - WEIGHT DECREASED [None]
  - CUTANEOUS TUBERCULOSIS [None]
  - HEADACHE [None]
  - ASTHENIA [None]
  - FATIGUE [None]
  - PYREXIA [None]
  - SCROTAL PAIN [None]
  - TUBERCULOMA OF CENTRAL NERVOUS SYSTEM [None]
  - CHILLS [None]
  - NODULE [None]
  - SUICIDAL IDEATION [None]
  - DYSPNOEA [None]
